FAERS Safety Report 9860022 (Version 5)
Quarter: 2015Q2

REPORT INFORMATION
  Report Type: Report from Study
  Country: GB (occurrence: GB)
  Receive Date: 20140131
  Receipt Date: 20150429
  Transmission Date: 20150821
  Serious: Yes (Death, Congenital Anomaly, Other)
  Sender: FDA-Public Use
  Company Number: GB-GILEAD-2014-0093213

PATIENT
  Sex: Female

DRUGS (4)
  1. ZOPICLONE ACTAVIS [Concomitant]
     Active Substance: ZOPICLONE
  2. DALTEPARIN                         /01708302/ [Concomitant]
  3. EFAVIRENZ/EMTRICITABINE/TENOFOVIR DISOPROXIL FUMARATE [Suspect]
     Active Substance: EFAVIRENZ\EMTRICITABINE\TENOFOVIR DISOPROXIL FUMARATE
     Indication: HIV INFECTION
     Dosage: 1 DF, QD
     Route: 064
     Dates: start: 20130818, end: 20140512
  4. CITALOPRAM [Concomitant]
     Active Substance: CITALOPRAM HYDROBROMIDE

REACTIONS (3)
  - Cytomegalovirus test positive [Fatal]
  - Polyhydramnios [Unknown]
  - Trisomy 21 [Fatal]
